FAERS Safety Report 10861929 (Version 3)
Quarter: 2015Q2

REPORT INFORMATION
  Report Type: Spontaneous
  Country: CH (occurrence: CH)
  Receive Date: 20150224
  Receipt Date: 20150504
  Transmission Date: 20150821
  Serious: Yes (Life-Threatening, Hospitalization)
  Sender: FDA-Public Use
  Company Number: CH-PFIZER INC-2015062928

PATIENT
  Age: 82 Year
  Sex: Female
  Weight: 89 kg

DRUGS (5)
  1. JANUVIA [Concomitant]
     Active Substance: SITAGLIPTIN PHOSPHATE
  2. TOVIAZ [Concomitant]
     Active Substance: FESOTERODINE FUMARATE
  3. COVERSUM [Concomitant]
     Active Substance: PERINDOPRIL
  4. ASPIRIN CARDIO [Concomitant]
     Active Substance: ASPIRIN
  5. XALKORI [Suspect]
     Active Substance: CRIZOTINIB
     Indication: NON-SMALL CELL LUNG CANCER METASTATIC
     Dosage: 250 MG, 2X/DAY
     Route: 048
     Dates: start: 20141223

REACTIONS (4)
  - Atrioventricular block second degree [Recovering/Resolving]
  - Bradycardia [Unknown]
  - Cardiac failure [Unknown]
  - Syncope [Recovered/Resolved]

NARRATIVE: CASE EVENT DATE: 20150117
